FAERS Safety Report 18144533 (Version 1)
Quarter: 2020Q3

REPORT INFORMATION
  Report Type: Spontaneous
  Country: US (occurrence: US)
  Receive Date: 20200812
  Receipt Date: 20200812
  Transmission Date: 20201103
  Serious: Yes (Other)
  Sender: FDA-Public Use
  Company Number: None

PATIENT
  Sex: Female
  Weight: 63.5 kg

DRUGS (4)
  1. MIRENA [Suspect]
     Active Substance: LEVONORGESTREL
     Dates: start: 20150506, end: 20200731
  2. CLARITIN [Concomitant]
     Active Substance: LORATADINE
  3. WELLBUTRIN [Concomitant]
     Active Substance: BUPROPION HYDROCHLORIDE
  4. VITAMIN D [Concomitant]
     Active Substance: VITAMIN D NOS

REACTIONS (13)
  - Anxiety [None]
  - Depression [None]
  - Arthralgia [None]
  - Arthritis [None]
  - Alopecia [None]
  - Fatigue [None]
  - Libido decreased [None]
  - Headache [None]
  - Nausea [None]
  - Insomnia [None]
  - Amnesia [None]
  - Vitamin D deficiency [None]
  - Complication associated with device [None]
